FAERS Safety Report 8023197-3 (Version None)
Quarter: 2012Q1

REPORT INFORMATION
  Report Type: 
  Country: None (occurrence: None)
  Receive Date: 20120104
  Receipt Date: 20111229
  Transmission Date: 20120608
  Serious: Yes (Death, Hospitalization)
  Sender: FDA-Public Use
  Company Number: RU-CELGENEUS-251-AB007-11090777

PATIENT
  Sex: Female
  Weight: 51 kg

DRUGS (9)
  1. CORTRYEALI [Concomitant]
     Route: 041
     Dates: start: 20110919, end: 20110919
  2. ONDANSETRON [Concomitant]
     Indication: PROPHYLAXIS
     Route: 041
     Dates: start: 20101203
  3. SODIUM CHLORIDE [Concomitant]
     Indication: INFUSION
     Route: 041
     Dates: start: 20101118
  4. ABRAXANE [Suspect]
     Dosage: 192MG
     Route: 065
     Dates: start: 20101203, end: 20110830
  5. VIT B1, B6 VIT C [Concomitant]
     Route: 041
     Dates: start: 20101121
  6. DEXAMETHASONE [Concomitant]
     Indication: PROPHYLAXIS
     Route: 041
     Dates: start: 20101203
  7. ABRAXANE [Suspect]
     Dosage: 197MG
     Route: 065
     Dates: end: 20110920
  8. GEMCITABINE [Suspect]
     Dosage: 1540MG
     Route: 065
     Dates: start: 20101203, end: 20110830
  9. GEMCITABINE [Suspect]
     Dosage: 948MG
     Route: 065
     Dates: end: 20110920

REACTIONS (12)
  - HAEMORRHAGE SUBCUTANEOUS [None]
  - HEPATIC CIRRHOSIS [None]
  - MULTI-ORGAN FAILURE [None]
  - EPISTAXIS [None]
  - FEBRILE NEUTROPENIA [None]
  - FATIGUE [None]
  - JAUNDICE CHOLESTATIC [None]
  - GASTROINTESTINAL HAEMORRHAGE [None]
  - OEDEMA PERIPHERAL [None]
  - PETECHIAE [None]
  - VOMITING [None]
  - DISEASE PROGRESSION [None]
